FAERS Safety Report 5932869-3 (Version None)
Quarter: 2008Q4

REPORT INFORMATION
  Report Type: 
  Country: None (occurrence: None)
  Receive Date: 20081027
  Receipt Date: 20081027
  Transmission Date: 20090506
  Serious: Yes (Hospitalization, Other)
  Sender: FDA-Public Use
  Company Number: None

PATIENT
  Age: 47 Year
  Sex: Female
  Weight: 57.6068 kg

DRUGS (2)
  1. KENALOG-10 [Suspect]
  2. KENALOG-40 [Suspect]

REACTIONS (10)
  - ANAPHYLACTIC REACTION [None]
  - HEADACHE [None]
  - ILL-DEFINED DISORDER [None]
  - INSOMNIA [None]
  - IRRITABILITY [None]
  - MALAISE [None]
  - MENSTRUAL DISORDER [None]
  - MUSCULAR WEAKNESS [None]
  - NAUSEA [None]
  - PIGMENTATION DISORDER [None]
